FAERS Safety Report 24015706 (Version 2)
Quarter: 2024Q3

REPORT INFORMATION
  Report Type: Report from Study
  Country: IT (occurrence: IT)
  Receive Date: 20240626
  Receipt Date: 20240713
  Transmission Date: 20241017
  Serious: Yes (Other)
  Sender: TEVA
  Company Number: None

PATIENT
  Age: 6 Year
  Sex: Male
  Weight: 28 kg

DRUGS (4)
  1. METHOTREXATE [Suspect]
     Active Substance: METHOTREXATE
     Indication: B-cell type acute leukaemia
     Dosage: 420.00 MG INFUSION OVER 30 MIN. + 3790.00 MG INFUSION IN 1410 MIN, METHOTREXATE TEVA
     Route: 042
     Dates: start: 20240425, end: 20240426
  2. IFOSFAMIDE [Suspect]
     Active Substance: IFOSFAMIDE
     Indication: B-cell type acute leukaemia
     Dosage: 675.00 MG EVERY 12 HOURS FOR A TOTAL OF 5 SUMMATIONS.
     Route: 042
     Dates: start: 20240427, end: 20240429
  3. ONCASPAR [Suspect]
     Active Substance: PEGASPARGASE
     Indication: B-cell type acute leukaemia
     Dosage: 2110.00 IU INFUSION IN 120 MIN.
     Route: 042
     Dates: start: 20240502, end: 20240502
  4. DAUNORUBICIN [Suspect]
     Active Substance: DAUNORUBICIN
     Indication: B-cell type acute leukaemia
     Dosage: 25.00 MG INFUSION OVER 1440 MINUTES
     Route: 042
     Dates: start: 20240427, end: 20240427

REACTIONS (3)
  - Leukopenia [Recovered/Resolved]
  - Stomatitis [Recovered/Resolved]
  - Thrombocytopenia [Recovered/Resolved]

NARRATIVE: CASE EVENT DATE: 20240505
